FAERS Safety Report 5164414-7 (Version None)
Quarter: 2006Q4

REPORT INFORMATION
  Report Type: 
  Country: None (occurrence: None)
  Receive Date: 20061205
  Receipt Date: 20061127
  Transmission Date: 20070319
  Serious: Yes (Hospitalization)
  Sender: FDA-Public Use
  Company Number: CH-BRISTOL-MYERS SQUIBB COMPANY-13590583

PATIENT
  Age: 63 Year
  Sex: Male

DRUGS (3)
  1. METHOTREXATE [Suspect]
     Indication: PSORIASIS
  2. INFLIXIMAB [Concomitant]
     Indication: PSORIASIS
  3. RAPTIVA [Concomitant]
     Indication: PSORIASIS

REACTIONS (6)
  - DRUG RESISTANCE [None]
  - ERYTHRODERMIC PSORIASIS [None]
  - OEDEMA [None]
  - PSORIASIS [None]
  - PYREXIA [None]
  - REBOUND EFFECT [None]
